FAERS Safety Report 8951450 (Version 1)
Quarter: 2012Q4

REPORT INFORMATION
  Report Type: Spontaneous
  Country: GB (occurrence: None)
  Receive Date: 20121129
  Receipt Date: 20121129
  Transmission Date: 20130627
  Serious: Yes (Hospitalization)
  Sender: FDA-Public Use
  Company Number: AUR-APL-2012-04999

PATIENT
  Age: 2 Hour
  Sex: Male
  Weight: 2.43 kg

DRUGS (1)
  1. SERTRALINE [Suspect]
     Indication: DEPRESSION
     Dosage: (52 mg, 1 in 1D)
     Route: 064

REACTIONS (8)
  - Maternal drugs affecting foetus [None]
  - Grunting [None]
  - Hypertonia [None]
  - Tardive dyskinesia [None]
  - Dyskinesia [None]
  - Neonatal respiratory distress syndrome [None]
  - Tachypnoea [None]
  - Use of accessory respiratory muscles [None]
